FAERS Safety Report 10213093 (Version 1)
Quarter: 2014Q2

REPORT INFORMATION
  Report Type: Spontaneous
  Country: AU (occurrence: AU)
  Receive Date: 20140603
  Receipt Date: 20140603
  Transmission Date: 20141212
  Serious: Yes (Other)
  Sender: FDA-Public Use
  Company Number: AU-ROCHE-1412439

PATIENT
  Sex: 0

DRUGS (2)
  1. HERCEPTIN [Suspect]
     Indication: METASTATIC NEOPLASM
     Route: 065
  2. ABRAXANE [Concomitant]

REACTIONS (1)
  - Disease progression [Unknown]
